FAERS Safety Report 26071581 (Version 1)
Quarter: 2025Q4

REPORT INFORMATION
  Report Type: Spontaneous
  Country: US (occurrence: US)
  Receive Date: 20251120
  Receipt Date: 20251120
  Transmission Date: 20260118
  Serious: Yes (Other)
  Sender: ELI LILLY AND COMPANY
  Company Number: US-ELI_LILLY_AND_COMPANY-US202511010832

PATIENT
  Age: 51 Year
  Sex: Female

DRUGS (2)
  1. SELPERCATINIB [Suspect]
     Active Substance: SELPERCATINIB
     Indication: Medullary thyroid cancer
     Dosage: UNK, UNKNOWN
     Route: 065
  2. SELPERCATINIB [Suspect]
     Active Substance: SELPERCATINIB
     Dosage: UNK, UNKNOWN
     Route: 065

REACTIONS (3)
  - Pancytopenia [Unknown]
  - Acute myeloid leukaemia [Unknown]
  - Electrocardiogram QT prolonged [Unknown]
